FAERS Safety Report 8185988-8 (Version None)
Quarter: 2012Q1

REPORT INFORMATION
  Report Type: 
  Country: None (occurrence: None)
  Receive Date: 20120306
  Receipt Date: 20120221
  Transmission Date: 20120608
  Serious: Yes (Death, Hospitalization)
  Sender: FDA-Public Use
  Company Number: JP-AMGEN-JPNSP2012009393

PATIENT
  Age: 77 Year
  Sex: Male
  Weight: 45.896 kg

DRUGS (4)
  1. ENBREL [Suspect]
     Indication: RHEUMATOID ARTHRITIS
     Dosage: 25 MG, 2X/WEEK
     Dates: start: 20060310
  2. RABEPRAZOLE SODIUM [Concomitant]
     Indication: GASTRIC ULCER
     Dosage: 10 MG, 1X/DAY
     Route: 048
     Dates: start: 20060101
  3. PREDNISOLONE [Concomitant]
     Indication: RHEUMATOID ARTHRITIS
     Dosage: 3 MG, 1X/DAY
     Route: 048
     Dates: start: 20040401
  4. ERYTHROMYCIN [Concomitant]
     Indication: INTERSTITIAL LUNG DISEASE
     Dosage: 200 MG, 2X/DAY
     Route: 048
     Dates: start: 20100126

REACTIONS (2)
  - METASTATIC NEOPLASM [None]
  - METASTASES TO BONE [None]
